FAERS Safety Report 5184431-0 (Version None)
Quarter: 2006Q4

REPORT INFORMATION
  Report Type: 
  Country: None (occurrence: None)
  Receive Date: 20061220
  Receipt Date: 20060406
  Transmission Date: 20070319
  Serious: No
  Sender: FDA-Public Use
  Company Number: US-GLAXOSMITHKLINE-A0600889A

PATIENT
  Age: 48 Year

DRUGS (2)
  1. NICODERM CQ [Suspect]
  2. WELLBUTRIN [Concomitant]

REACTIONS (4)
  - ANGER [None]
  - DEPRESSION [None]
  - FEELING ABNORMAL [None]
  - TEARFULNESS [None]
